FAERS Safety Report 8955560 (Version 4)
Quarter: 2013Q1

REPORT INFORMATION
  Report Type: Spontaneous
  Country: CH (occurrence: CH)
  Receive Date: 20121210
  Receipt Date: 20130114
  Transmission Date: 20140127
  Serious: Yes (Hospitalization)
  Sender: FDA-Public Use
  Company Number: CH-AMGEN-CHESP2012078795

PATIENT
  Age: 68 Year
  Sex: Male
  Weight: 74 kg

DRUGS (4)
  1. NEULASTA [Suspect]
     Indication: PRODUCT USED FOR UNKNOWN INDICATION
     Dosage: 6 MG, UNK
     Route: 058
     Dates: start: 20121009
  2. BENDAMUSTINE [Suspect]
     Dosage: 135 MG, D1-D2
     Route: 042
     Dates: start: 20120809
  3. REVLIMID [Suspect]
     Dosage: 25 MG, DAY 1 TO 21
     Route: 048
     Dates: start: 20120809
  4. DEXAMETHASONE [Suspect]
     Dosage: 40 MG, D1, 8, 15, 22
     Route: 048
     Dates: start: 20120809

REACTIONS (2)
  - Musculoskeletal pain [Not Recovered/Not Resolved]
  - Sternal fracture [Not Recovered/Not Resolved]
